FAERS Safety Report 16591111 (Version 1)
Quarter: 2019Q3

REPORT INFORMATION
  Report Type: Spontaneous
  Country: US (occurrence: US)
  Receive Date: 20190605
  Receipt Date: 20190605
  Transmission Date: 20191004
  Serious: No
  Sender: FDA-Public Use
  Company Number: None

PATIENT
  Age: 63 Year
  Sex: Female

DRUGS (1)
  1. REPATHA [Suspect]
     Active Substance: EVOLOCUMAB
     Dates: start: 20190517, end: 20190605

REACTIONS (4)
  - Fatigue [None]
  - Headache [None]
  - Influenza like illness [None]
  - Pain [None]

NARRATIVE: CASE EVENT DATE: 20190517
